FAERS Safety Report 9009479 (Version 4)
Quarter: 2014Q1

REPORT INFORMATION
  Report Type: Spontaneous
  Country: US (occurrence: US)
  Receive Date: 20130110
  Receipt Date: 20140130
  Transmission Date: 20141002
  Serious: No
  Sender: FDA-Public Use
  Company Number: US-PFIZER INC-2013011465

PATIENT
  Age: 57 Year
  Sex: Male
  Weight: 88.44 kg

DRUGS (4)
  1. LYRICA [Suspect]
     Indication: NEUROPATHY PERIPHERAL
     Dosage: 75 MG, 3X/DAY
     Route: 048
     Dates: start: 2012, end: 20120401
  2. BENICAR [Concomitant]
     Indication: HYPERTENSION
     Dosage: 40 MG, 1X/DAY
  3. AMBIEN [Concomitant]
     Dosage: 5 MG, AT BEDTIME
  4. CIALIS [Concomitant]
     Dosage: 20 MG, AS NEEDED

REACTIONS (2)
  - Musculoskeletal disorder [Not Recovered/Not Resolved]
  - Neuralgia [Unknown]
